FAERS Safety Report 7443041-2 (Version None)
Quarter: 2011Q2

REPORT INFORMATION
  Report Type: 
  Country: None (occurrence: None)
  Receive Date: 20110428
  Receipt Date: 20110420
  Transmission Date: 20111010
  Serious: Yes (Hospitalization)
  Sender: FDA-Public Use
  Company Number: BR-MEDIMMUNE-MEDI-0013135

PATIENT
  Sex: Male
  Weight: 13 kg

DRUGS (1)
  1. SYNAGIS [Suspect]
     Indication: BRONCHOPULMONARY DYSPLASIA
     Route: 030
     Dates: start: 20090708, end: 20090708

REACTIONS (7)
  - RHINORRHOEA [None]
  - DENGUE FEVER [None]
  - COUGH [None]
  - INFLUENZA [None]
  - VOMITING [None]
  - CONJUNCTIVITIS [None]
  - PYREXIA [None]
